FAERS Safety Report 13215442 (Version 2)
Quarter: 2018Q1

REPORT INFORMATION
  Report Type: Spontaneous
  Country: US (occurrence: US)
  Receive Date: 20170210
  Receipt Date: 20180219
  Transmission Date: 20180508
  Serious: No
  Sender: FDA-Public Use
  Company Number: US-ROCHE-1797796

PATIENT
  Sex: Female

DRUGS (1)
  1. XOLAIR [Suspect]
     Active Substance: OMALIZUMAB
     Indication: URTICARIA
     Route: 058
     Dates: start: 20160418

REACTIONS (8)
  - Chest pain [Unknown]
  - Breast swelling [Unknown]
  - Alopecia [Unknown]
  - Oedema [Unknown]
  - Blood pressure increased [Unknown]
  - Peripheral swelling [Unknown]
  - Nasal oedema [Unknown]
  - Muscle spasms [Unknown]
